FAERS Safety Report 23667396 (Version 2)
Quarter: 2024Q1

REPORT INFORMATION
  Report Type: Spontaneous
  Country: JP (occurrence: JP)
  Receive Date: 20240325
  Receipt Date: 20240327
  Transmission Date: 20240410
  Serious: Yes (Other)
  Sender: FDA-Public Use
  Company Number: JP-ASTELLAS-2023JP012387

PATIENT
  Age: 78 Year
  Sex: Male

DRUGS (38)
  1. PROGRAF [Suspect]
     Active Substance: TACROLIMUS
     Indication: Dermatomyositis
     Dosage: 2 MG/DAY, UNKNOWN FREQ.
     Route: 048
     Dates: start: 20220412
  2. PROGRAF [Suspect]
     Active Substance: TACROLIMUS
     Indication: Interstitial lung disease
     Dosage: 4 MG/DAY, UNKNOWN FREQ.
     Route: 048
     Dates: start: 20220415
  3. PROGRAF [Suspect]
     Active Substance: TACROLIMUS
     Indication: Immunosuppressant drug therapy
     Dosage: 5 MG/DAY, UNKNOWN FREQ.
     Route: 048
     Dates: start: 20220419
  4. PROGRAF [Suspect]
     Active Substance: TACROLIMUS
     Dosage: 6 MG/DAY, UNKNOWN FREQ.
     Route: 048
     Dates: start: 20220422
  5. PROGRAF [Suspect]
     Active Substance: TACROLIMUS
     Dosage: 7 MG/DAY, UNKNOWN FREQ.
     Route: 048
     Dates: start: 20220510
  6. PROGRAF [Suspect]
     Active Substance: TACROLIMUS
     Dosage: 6.5 MG/DAY, UNKNOWN FREQ.
     Route: 048
     Dates: start: 20220518
  7. PROGRAF [Suspect]
     Active Substance: TACROLIMUS
     Dosage: 5.5 MG/DAY, UNKNOWN FREQ.
     Route: 048
     Dates: start: 20220530
  8. PROGRAF [Suspect]
     Active Substance: TACROLIMUS
     Dosage: 4.5 MG/DAY, UNKNOWN FREQ.
     Route: 048
     Dates: start: 20220606
  9. PROGRAF [Suspect]
     Active Substance: TACROLIMUS
     Dosage: 4 MG/DAY, UNKNOWN FREQ.
     Route: 048
     Dates: start: 20220609
  10. PROGRAF [Suspect]
     Active Substance: TACROLIMUS
     Dosage: 5 MG/DAY, UNKNOWN FREQ.
     Route: 048
     Dates: start: 20220627
  11. PROGRAF [Suspect]
     Active Substance: TACROLIMUS
     Dosage: 6 MG/DAY, UNKNOWN FREQ.
     Route: 048
     Dates: start: 20220630
  12. PROGRAF [Suspect]
     Active Substance: TACROLIMUS
     Dosage: 5 MG/DAY, UNKNOWN FREQ.
     Route: 048
     Dates: start: 20220704
  13. PROGRAF [Suspect]
     Active Substance: TACROLIMUS
     Dosage: 4 MG/DAY, UNKNOWN FREQ.
     Route: 048
     Dates: start: 20220707
  14. PROGRAF [Suspect]
     Active Substance: TACROLIMUS
     Dosage: 4.5 MG/DAY, UNKNOWN FREQ.
     Route: 048
     Dates: start: 20220711
  15. PROGRAF [Suspect]
     Active Substance: TACROLIMUS
     Dosage: 5 MG/DAY, UNKNOWN FREQ.
     Route: 048
     Dates: start: 20220714
  16. PROGRAF [Suspect]
     Active Substance: TACROLIMUS
     Dosage: 5.5 MG/DAY, UNKNOWN FREQ.
     Route: 048
     Dates: start: 20220723
  17. PROGRAF [Suspect]
     Active Substance: TACROLIMUS
     Dosage: 2 MG/DAY, UNKNOWN FREQ.
     Route: 048
     Dates: start: 20220810
  18. PROGRAF [Suspect]
     Active Substance: TACROLIMUS
     Dosage: 3 MG/DAY, UNKNOWN FREQ.
     Route: 048
     Dates: start: 20220812
  19. PROGRAF [Suspect]
     Active Substance: TACROLIMUS
     Dosage: 4 MG/DAY, UNKNOWN FREQ.
     Route: 048
     Dates: start: 20220816
  20. METHYLPREDNISOLONE [Suspect]
     Active Substance: METHYLPREDNISOLONE
     Indication: Dermatomyositis
     Route: 065
     Dates: start: 20220409, end: 20220411
  21. METHYLPREDNISOLONE [Suspect]
     Active Substance: METHYLPREDNISOLONE
     Indication: Interstitial lung disease
     Route: 065
     Dates: start: 20220428, end: 20220430
  22. METHYLPREDNISOLONE [Suspect]
     Active Substance: METHYLPREDNISOLONE
     Indication: Immunosuppressant drug therapy
  23. PREDNISOLONE [Suspect]
     Active Substance: PREDNISOLONE
     Indication: Dermatomyositis
     Route: 065
     Dates: start: 20220412
  24. PREDNISOLONE [Suspect]
     Active Substance: PREDNISOLONE
     Indication: Interstitial lung disease
     Route: 065
     Dates: start: 20220513
  25. PREDNISOLONE [Suspect]
     Active Substance: PREDNISOLONE
     Indication: Immunosuppressant drug therapy
     Route: 065
     Dates: start: 20220530
  26. PREDNISOLONE [Suspect]
     Active Substance: PREDNISOLONE
     Route: 065
     Dates: start: 20220610
  27. PREDNISOLONE [Suspect]
     Active Substance: PREDNISOLONE
     Route: 065
     Dates: start: 20220625
  28. PREDNISOLONE [Suspect]
     Active Substance: PREDNISOLONE
     Route: 065
     Dates: start: 20220709
  29. PREDNISOLONE [Suspect]
     Active Substance: PREDNISOLONE
     Route: 065
     Dates: start: 20220723
  30. PREDNISOLONE [Suspect]
     Active Substance: PREDNISOLONE
     Route: 065
     Dates: start: 20220816
  31. PREDNISOLONE [Suspect]
     Active Substance: PREDNISOLONE
     Route: 065
     Dates: start: 20220830
  32. PREDNISOLONE [Suspect]
     Active Substance: PREDNISOLONE
     Route: 065
     Dates: start: 20220913
  33. CYCLOPHOSPHAMIDE [Suspect]
     Active Substance: CYCLOPHOSPHAMIDE
     Indication: Dermatomyositis
     Route: 042
     Dates: start: 20220414
  34. CYCLOPHOSPHAMIDE [Suspect]
     Active Substance: CYCLOPHOSPHAMIDE
     Indication: Interstitial lung disease
     Route: 042
     Dates: start: 20220502
  35. CYCLOPHOSPHAMIDE [Suspect]
     Active Substance: CYCLOPHOSPHAMIDE
     Indication: Immunosuppressant drug therapy
     Route: 042
     Dates: start: 20220516
  36. CYCLOPHOSPHAMIDE [Suspect]
     Active Substance: CYCLOPHOSPHAMIDE
     Route: 042
     Dates: start: 20220530
  37. CYCLOPHOSPHAMIDE [Suspect]
     Active Substance: CYCLOPHOSPHAMIDE
     Route: 042
     Dates: start: 20220614
  38. CYCLOPHOSPHAMIDE [Suspect]
     Active Substance: CYCLOPHOSPHAMIDE
     Route: 042
     Dates: start: 20220630

REACTIONS (3)
  - Pneumonia aspiration [Recovering/Resolving]
  - Pneumonia bacterial [Recovered/Resolved]
  - Cytomegalovirus infection [Recovered/Resolved]

NARRATIVE: CASE EVENT DATE: 20220523
